FAERS Safety Report 19447605 (Version 2)
Quarter: 2021Q3

REPORT INFORMATION
  Report Type: Spontaneous
  Country: US (occurrence: US)
  Receive Date: 20210622
  Receipt Date: 20210825
  Transmission Date: 20211014
  Serious: No
  Sender: FDA-Public Use
  Company Number: US-SA-2021SA204576

PATIENT
  Age: 69 Year
  Sex: Male

DRUGS (1)
  1. DUPIXENT [Suspect]
     Active Substance: DUPILUMAB
     Indication: ASTHMA
     Dosage: 300 MG, Q15D
     Route: 058
     Dates: start: 20200108, end: 20210414

REACTIONS (2)
  - Product use issue [Unknown]
  - Hepatic enzyme increased [Not Recovered/Not Resolved]

NARRATIVE: CASE EVENT DATE: 20200108
